FAERS Safety Report 8780245 (Version 1)
Quarter: 2012Q4

REPORT INFORMATION
  Report Type: 
  Country: US (occurrence: None)
  Receive Date: 20120904
  Receipt Date: 20120904
  Transmission Date: 20130627
  Serious: Yes (Hospitalization)
  Sender: FDA-Public Use
  Company Number: None

PATIENT
  Sex: Male
  Weight: 104 kg

DRUGS (4)
  1. BEVACIZUMAB [Suspect]
  2. CARBOPLATIN [Suspect]
  3. CETUXIMAB [Suspect]
  4. PACLITAXEL (TAXOL) [Suspect]

REACTIONS (7)
  - Dehydration [None]
  - Lethargy [None]
  - Pyelonephritis [None]
  - Renal abscess [None]
  - Staphylococcal bacteraemia [None]
  - Decreased appetite [None]
  - Blood sodium decreased [None]
